FAERS Safety Report 8524811-6 (Version None)
Quarter: 2012Q3

REPORT INFORMATION
  Report Type: 
  Country: None (occurrence: None)
  Receive Date: 20120720
  Receipt Date: 20120709
  Transmission Date: 20120928
  Serious: Yes (Hospitalization)
  Sender: FDA-Public Use
  Company Number: JP-GLAXOSMITHKLINE-B0721358A

PATIENT
  Age: 13 Year
  Sex: Female
  Weight: 40 kg

DRUGS (4)
  1. UNKNOWN DRUG [Suspect]
     Route: 065
  2. ACETAMINOPHEN [Suspect]
     Indication: PRODUCT USED FOR UNKNOWN INDICATION
     Route: 065
  3. VALTREX [Suspect]
     Indication: SUICIDE ATTEMPT
     Route: 048
     Dates: start: 20110517, end: 20110517
  4. SULPIRIDE [Suspect]
     Indication: PRODUCT USED FOR UNKNOWN INDICATION
     Route: 065

REACTIONS (7)
  - VOMITING [None]
  - NAUSEA [None]
  - RENAL IMPAIRMENT [None]
  - INTENTIONAL OVERDOSE [None]
  - LOSS OF CONSCIOUSNESS [None]
  - RENAL DISORDER [None]
  - BLOOD CREATININE INCREASED [None]
